FAERS Safety Report 8360757-4 (Version None)
Quarter: 2012Q2

REPORT INFORMATION
  Report Type: 
  Country: None (occurrence: None)
  Receive Date: 20120515
  Receipt Date: 20120507
  Transmission Date: 20120825
  Serious: Yes (Hospitalization)
  Sender: FDA-Public Use
  Company Number: FR-FRI-1000030479

PATIENT
  Sex: Female

DRUGS (9)
  1. ESCITALOPRAM [Suspect]
     Dosage: 10 MG
     Route: 048
     Dates: start: 20070101
  2. CRESTOR [Concomitant]
  3. TENORMIN [Concomitant]
  4. CYTOMEL [Concomitant]
  5. VALSARTAN  AND HYDROCHLOROTHIAZIDE [Concomitant]
  6. ALENDRONATE SODIUM [Concomitant]
  7. TEMESTA [Concomitant]
  8. ASPIRIN [Concomitant]
  9. ACETAMINOPHEN AND TRAMADOL HCL [Suspect]
     Route: 048
     Dates: end: 20120313

REACTIONS (2)
  - CONVULSION [None]
  - DRUG INTERACTION [None]
